FAERS Safety Report 10884470 (Version 2)
Quarter: 2015Q1

REPORT INFORMATION
  Report Type: Spontaneous
  Country: SE (occurrence: SE)
  Receive Date: 20150304
  Receipt Date: 20150319
  Transmission Date: 20150721
  Serious: Yes (Hospitalization)
  Sender: FDA-Public Use
  Company Number: SE-JNJFOC-20150212836

PATIENT
  Age: 91 Year
  Sex: Female

DRUGS (3)
  1. AMLODIPINE [Concomitant]
     Active Substance: AMLODIPINE BESYLATE
     Route: 065
  2. HALDOL [Suspect]
     Active Substance: HALOPERIDOL
     Indication: PRODUCT USED FOR UNKNOWN INDICATION
     Route: 048
     Dates: end: 20141217
  3. KALCIPOS [Concomitant]
     Active Substance: CALCIUM CARBONATE
     Route: 066

REACTIONS (2)
  - Somnolence [Recovering/Resolving]
  - Facial paresis [Recovering/Resolving]

NARRATIVE: CASE EVENT DATE: 20141217
